FAERS Safety Report 8529589-8 (Version None)
Quarter: 2012Q3

REPORT INFORMATION
  Report Type: 
  Country: None (occurrence: None)
  Receive Date: 20120710
  Receipt Date: 20120625
  Transmission Date: 20120928
  Serious: Yes (Other)
  Sender: FDA-Public Use
  Company Number: 2012SA046766

PATIENT
  Age: 34 Year
  Sex: Male

DRUGS (1)
  1. GOLD BOND / UNKNOWN / UNKNOWN [Suspect]
     Indication: DRY SKIN
     Dates: start: 20120624

REACTIONS (1)
  - APPLICATION SITE PAIN [None]
